FAERS Safety Report 8541083-7 (Version None)
Quarter: 2012Q3

REPORT INFORMATION
  Report Type: 
  Country: None (occurrence: None)
  Receive Date: 20120726
  Receipt Date: 20111018
  Transmission Date: 20120928
  Serious: No
  Sender: FDA-Public Use
  Company Number: US-ASTRAZENECA-2011SE49131

PATIENT
  Age: 47 Year
  Sex: Male

DRUGS (9)
  1. SEROQUEL [Suspect]
     Indication: BIPOLAR DISORDER
     Route: 048
  2. SEROQUEL [Suspect]
     Indication: DEPRESSION
     Route: 048
  3. SEROQUEL [Suspect]
     Indication: SCHIZOPHRENIA
     Route: 048
  4. SEROQUEL [Suspect]
     Route: 048
  5. SEROQUEL [Suspect]
     Route: 048
  6. SEROQUEL [Suspect]
     Dosage: 100 MG THREE TO FOUR TABLETS DAILY
     Route: 048
  7. SEROQUEL [Suspect]
     Dosage: 100 MG THREE TO FOUR TABLETS DAILY
     Route: 048
  8. SEROQUEL [Suspect]
     Dosage: 100 MG THREE TO FOUR TABLETS DAILY
     Route: 048
  9. SEROQUEL [Suspect]
     Route: 048

REACTIONS (9)
  - INCORRECT DOSE ADMINISTERED [None]
  - DRUG DOSE OMISSION [None]
  - INSOMNIA [None]
  - FALL [None]
  - OPEN WOUND [None]
  - PAIN [None]
  - ADVERSE EVENT [None]
  - JOINT RANGE OF MOTION DECREASED [None]
  - MOOD ALTERED [None]
